FAERS Safety Report 18918401 (Version 1)
Quarter: 2021Q1

REPORT INFORMATION
  Report Type: Spontaneous
  Country: US (occurrence: US)
  Receive Date: 20210219
  Receipt Date: 20210219
  Transmission Date: 20210420
  Serious: No
  Sender: FDA-Public Use
  Company Number: US-NEXGEN PHARMA, INC.-2107053

PATIENT
  Age: 51 Year
  Sex: Female

DRUGS (1)
  1. CHENODAL [Suspect]
     Active Substance: CHENODIOL
     Indication: NEURONAL CEROID LIPOFUSCINOSIS
     Route: 048
     Dates: start: 20100409

REACTIONS (2)
  - Muscle strain [Unknown]
  - Pain [Unknown]

NARRATIVE: CASE EVENT DATE: 20210202
